FAERS Safety Report 9061227 (Version 1)
Quarter: 2013Q1

REPORT INFORMATION
  Report Type: Spontaneous
  Country: AR (occurrence: AR)
  Receive Date: 20130204
  Receipt Date: 20130204
  Transmission Date: 20140127
  Serious: Yes (Death)
  Sender: FDA-Public Use
  Company Number: AR-GENZYME-FABR-1003000

PATIENT
  Age: 42 Year
  Sex: Male

DRUGS (1)
  1. FABRAZYME [Suspect]
     Indication: FABRY^S DISEASE
     Dosage: UNK
     Route: 042
     Dates: end: 20130118

REACTIONS (1)
  - Cardiac arrest [Fatal]
